FAERS Safety Report 5648397-9 (Version None)
Quarter: 2008Q1

REPORT INFORMATION
  Report Type: 
  Country: None (occurrence: None)
  Receive Date: 20080303
  Receipt Date: 20080303
  Transmission Date: 20080703
  Serious: No
  Sender: FDA-Public Use
  Company Number: None

PATIENT
  Age: 16 Year
  Sex: Male

DRUGS (1)
  1. TEGRETOL [Suspect]
     Indication: DRUG TOXICITY
     Dosage: 800 MG TID P.O.
     Route: 048

REACTIONS (1)
  - TREATMENT NONCOMPLIANCE [None]
